FAERS Safety Report 14667648 (Version 1)
Quarter: 2018Q1

REPORT INFORMATION
  Report Type: Spontaneous
  Country: US (occurrence: US)
  Receive Date: 20180322
  Receipt Date: 20180322
  Transmission Date: 20180509
  Serious: No
  Sender: FDA-Public Use
  Company Number: US-PFIZER INC-2018113811

PATIENT
  Age: 45 Year
  Sex: Male
  Weight: 68.4 kg

DRUGS (1)
  1. LYRICA [Suspect]
     Active Substance: PREGABALIN
     Indication: NECK SURGERY
     Dosage: 50 MG, 3X/DAY (TWO CAPSULES)
     Route: 048
     Dates: start: 20180315

REACTIONS (4)
  - Dizziness [Not Recovered/Not Resolved]
  - Balance disorder [Unknown]
  - Headache [Not Recovered/Not Resolved]
  - Disturbance in attention [Recovering/Resolving]

NARRATIVE: CASE EVENT DATE: 20180316
